FAERS Safety Report 14035497 (Version 1)
Quarter: 2017Q4

REPORT INFORMATION
  Report Type: Spontaneous
  Country: US (occurrence: US)
  Receive Date: 20171003
  Receipt Date: 20171003
  Transmission Date: 20180321
  Serious: No
  Sender: FDA-Public Use
  Company Number: US-DRREDDYS-USA/USA/17/0086310

PATIENT

DRUGS (1)
  1. MONTELUKAST [Suspect]
     Active Substance: MONTELUKAST SODIUM
     Indication: PRODUCT USED FOR UNKNOWN INDICATION
     Route: 065

REACTIONS (8)
  - Visual impairment [Unknown]
  - Rash [Unknown]
  - Respiration abnormal [Unknown]
  - Dyspepsia [Unknown]
  - Pruritus [Unknown]
  - Hyperhidrosis [Unknown]
  - Ear pain [Unknown]
  - Toothache [Unknown]
